FAERS Safety Report 6361833-8 (Version None)
Quarter: 2009Q3

REPORT INFORMATION
  Report Type: 
  Country: None (occurrence: None)
  Receive Date: 20090918
  Receipt Date: 20090908
  Transmission Date: 20100115
  Serious: Yes (Other)
  Sender: FDA-Public Use
  Company Number: DE-BAUSCH-2009BL004553

PATIENT
  Sex: Female

DRUGS (1)
  1. BETAMANN 0.3% EDO AUGENTROPFEN [Suspect]
     Indication: GLAUCOMA
     Route: 047
     Dates: start: 20070101, end: 20070101

REACTIONS (2)
  - EYE HAEMORRHAGE [None]
  - VISION BLURRED [None]
